FAERS Safety Report 12441223 (Version 1)
Quarter: 2016Q2

REPORT INFORMATION
  Report Type: Spontaneous
  Country: FR (occurrence: FR)
  Receive Date: 20160607
  Receipt Date: 20160607
  Transmission Date: 20160815
  Serious: Yes (Hospitalization)
  Sender: FDA-Public Use
  Company Number: FR-PFIZER INC-2016287841

PATIENT
  Age: 6 Month
  Sex: Female

DRUGS (8)
  1. HYDROCORTISONE. [Concomitant]
     Active Substance: HYDROCORTISONE
     Indication: SEIZURE
     Dosage: UNK
     Dates: start: 201601
  2. VALIUM [Suspect]
     Active Substance: DIAZEPAM
     Dosage: UNK
     Route: 042
  3. SABRIL [Concomitant]
     Active Substance: VIGABATRIN
     Indication: SEIZURE
     Dosage: 300 MG, 2X/DAY
     Dates: start: 201601
  4. KEPPRA [Concomitant]
     Active Substance: LEVETIRACETAM
     Indication: SEIZURE
     Dosage: 150 MG, 2X/DAY
     Dates: start: 201512
  5. VALIUM [Suspect]
     Active Substance: DIAZEPAM
     Indication: SEIZURE
     Dosage: 0.8 ML (I.E. 4 MG = 0.5 MG/KG) TWICE
     Route: 054
     Dates: start: 20160323
  6. DILANTIN [Suspect]
     Active Substance: PHENYTOIN
     Dosage: 5 MG/KG/8H, UNK
  7. RIVOTRIL [Concomitant]
     Active Substance: CLONAZEPAM
     Indication: SEIZURE
     Dosage: 2 DROPS THRICE A DAY
  8. DILANTIN [Suspect]
     Active Substance: PHENYTOIN
     Indication: SEIZURE
     Dosage: 10 MG/KG (110 MG TOTAL)
     Route: 041
     Dates: start: 20160323

REACTIONS (2)
  - Apnoea [Recovered/Resolved]
  - Oxygen saturation decreased [Recovered/Resolved]

NARRATIVE: CASE EVENT DATE: 20160523
